FAERS Safety Report 16732177 (Version 1)
Quarter: 2019Q3

REPORT INFORMATION
  Report Type: Report from Study
  Country: US (occurrence: US)
  Receive Date: 20190822
  Receipt Date: 20190822
  Transmission Date: 20191005
  Serious: Yes (Death)
  Sender: FDA-Public Use
  Company Number: US-ACTELION-A-NJ2017-157609

PATIENT
  Age: 93 Year
  Sex: Female
  Weight: 58.96 kg

DRUGS (2)
  1. ELIQUIS [Concomitant]
     Active Substance: APIXABAN
  2. OPSUMIT [Suspect]
     Active Substance: MACITENTAN
     Indication: PULMONARY ARTERIAL HYPERTENSION
     Dosage: 10 MG, QD
     Route: 048

REACTIONS (3)
  - Hypoacusis [Unknown]
  - Pruritus [Unknown]
  - Death [Fatal]

NARRATIVE: CASE EVENT DATE: 20190727
